FAERS Safety Report 5904700-3 (Version None)
Quarter: 2008Q4

REPORT INFORMATION
  Report Type: 
  Country: None (occurrence: None)
  Receive Date: 20081001
  Receipt Date: 20080919
  Transmission Date: 20090506
  Serious: Yes (Hospitalization)
  Sender: FDA-Public Use
  Company Number: ES-AMGEN-UK305033

PATIENT
  Sex: Male

DRUGS (2)
  1. PANITUMUMAB [Suspect]
     Indication: COLORECTAL CANCER
     Route: 042
     Dates: start: 20080825
  2. IRINOTECAN HCL [Suspect]
     Route: 042
     Dates: start: 20080825

REACTIONS (2)
  - LEUKOPENIA [None]
  - NEUTROPENIA [None]
